FAERS Safety Report 9546620 (Version 2)
Quarter: 2013Q3

REPORT INFORMATION
  Report Type: Spontaneous
  Country: US (occurrence: US)
  Receive Date: 20130924
  Receipt Date: 20130927
  Transmission Date: 20140515
  Serious: No
  Sender: FDA-Public Use
  Company Number: US-009507513-1309USA007004

PATIENT
  Age: 70 Year
  Sex: Male
  Weight: 80.73 kg

DRUGS (9)
  1. JANUVIA [Suspect]
     Indication: TYPE 2 DIABETES MELLITUS
     Dosage: 100MG DAILY
     Route: 048
     Dates: start: 201308
  2. ISOSORBIDE [Concomitant]
  3. ASPIRIN [Concomitant]
  4. AMLODIPINE [Concomitant]
  5. METFORMIN [Concomitant]
  6. LOVASTATIN [Concomitant]
  7. METOPROLOL [Concomitant]
  8. GLYBURIDE [Concomitant]
  9. CLOPIDOGREL [Concomitant]

REACTIONS (4)
  - Fatigue [Not Recovered/Not Resolved]
  - Constipation [Not Recovered/Not Resolved]
  - Sleep disorder [Not Recovered/Not Resolved]
  - Dysgeusia [Not Recovered/Not Resolved]
